FAERS Safety Report 4401351-7 (Version None)
Quarter: 2004Q3

REPORT INFORMATION
  Report Type: 
  Country: None (occurrence: None)
  Receive Date: 20040907
  Receipt Date: 20040322
  Transmission Date: 20050211
  Serious: No
  Sender: FDA-Public Use
  Company Number: US-BRISTOL-MYERS SQUIBB COMPANY-12539458

PATIENT
  Age: 88 Year
  Sex: Female
  Weight: 68 kg

DRUGS (3)
  1. COUMADIN [Suspect]
     Indication: TRANSIENT ISCHAEMIC ATTACK
     Dosage: DOSAGE: INITIATED AT 2MG DAILY, THEN VARIED 1MG TO 4MG, THEN BACK TO 2MG DAILY
     Route: 048
  2. VERAPAMIL [Concomitant]
  3. DIGITEK [Concomitant]

REACTIONS (2)
  - INTERNATIONAL NORMALISED RATIO ABNORMAL [None]
  - PROTHROMBIN TIME ABNORMAL [None]
